FAERS Safety Report 9186330 (Version 1)
Quarter: 2013Q1

REPORT INFORMATION
  Report Type: Report from Study
  Country: AT (occurrence: AT)
  Receive Date: 20130325
  Receipt Date: 20130325
  Transmission Date: 20140127
  Serious: Yes (Death)
  Sender: FDA-Public Use
  Company Number: AT-ROCHE-1204109

PATIENT
  Sex: Female

DRUGS (8)
  1. XELODA [Suspect]
     Indication: BREAST CANCER METASTATIC
     Dosage: 1500 MG/D MONOTHERAPY
     Route: 065
     Dates: start: 20070327, end: 20070617
  2. XELODA [Suspect]
     Dosage: 2000 MG/D MONOTHERAPY
     Route: 065
     Dates: start: 20070123, end: 20070206
  3. XELODA [Suspect]
     Dosage: 1500 MG/D MONOTHERAPY
     Route: 065
     Dates: start: 20070213, end: 20070305
  4. XELODA [Suspect]
     Dosage: 1500 MG/D MONOTHERAPY
     Route: 065
     Dates: start: 20070306, end: 20070326
  5. XELODA [Suspect]
     Dosage: 1500 MG/D MONOTHERAPY
     Route: 065
     Dates: start: 20070327, end: 20070416
  6. XELODA [Suspect]
     Dosage: 1500 MG/D MONOTHERAPY
     Route: 065
     Dates: start: 20070417, end: 20070507
  7. XELODA [Suspect]
     Dosage: 1500 MG/D MONOTHERAPY
     Route: 065
     Dates: start: 20070508, end: 20070528
  8. XELODA [Suspect]
     Dosage: 1500 MG/D MONOTHERAPY
     Route: 065
     Dates: start: 20070529, end: 20070618

REACTIONS (1)
  - Death [Fatal]
